FAERS Safety Report 22108004 (Version 1)
Quarter: 2023Q1

REPORT INFORMATION
  Report Type: Spontaneous
  Country: JP (occurrence: JP)
  Receive Date: 20230317
  Receipt Date: 20230317
  Transmission Date: 20230418
  Serious: Yes (Other)
  Sender: FDA-Public Use
  Company Number: JP-BEH-2023156476

PATIENT

DRUGS (4)
  1. PRIVIGEN [Suspect]
     Active Substance: HUMAN IMMUNOGLOBULIN G
     Indication: Product used for unknown indication
     Route: 064
  2. PREDNISOLONE [Suspect]
     Active Substance: PREDNISOLONE
     Route: 064
  3. PREDNISOLONE [Suspect]
     Active Substance: PREDNISOLONE
     Dosage: UNK
     Route: 064
  4. CYCLOSPORINE [Suspect]
     Active Substance: CYCLOSPORINE
     Route: 064

REACTIONS (4)
  - Petechiae [Unknown]
  - Foetal exposure during pregnancy [Unknown]
  - Thrombocytopenia neonatal [Unknown]
  - Foetal exposure during pregnancy [Unknown]
